FAERS Safety Report 9538709 (Version 1)
Quarter: 2013Q3

REPORT INFORMATION
  Report Type: Spontaneous
  Country: US (occurrence: US)
  Receive Date: 20130920
  Receipt Date: 20130920
  Transmission Date: 20140515
  Serious: Yes (Death, Other)
  Sender: FDA-Public Use
  Company Number: US-ROXANE LABORATORIES, INC.-2013-RO-01536RO

PATIENT
  Age: 1 Month
  Sex: Male
  Weight: 2.2 kg

DRUGS (4)
  1. FUROSEMIDE [Suspect]
  2. ENALAPRIL [Suspect]
     Indication: PROTEINURIA
     Route: 048
  3. ENALAPRIL [Suspect]
     Route: 042
  4. CHLOROTHIAZIDE [Suspect]

REACTIONS (5)
  - Pulmonary hypertension [Fatal]
  - Respiratory failure [Fatal]
  - Renal failure acute [Recovered/Resolved]
  - Hypotension [Recovered/Resolved]
  - Proteinuria [Unknown]
